FAERS Safety Report 4627245-X (Version None)
Quarter: 2005Q2

REPORT INFORMATION
  Report Type: 
  Country: None (occurrence: None)
  Receive Date: 20050405
  Receipt Date: 20050127
  Transmission Date: 20051028
  Serious: Yes (Hospitalization)
  Sender: FDA-Public Use
  Company Number: FR-SANOFI-SYNTHELABO-F01200500171

PATIENT
  Sex: Male

DRUGS (4)
  1. OXALIPLATIN [Suspect]
     Indication: COLORECTAL CANCER METASTATIC
     Route: 042
     Dates: start: 20050126, end: 20050126
  2. FLUOROURACIL [Suspect]
     Route: 042
     Dates: start: 20050126, end: 20050126
  3. LEUCOVORIN CALCIUM [Suspect]
     Route: 042
     Dates: start: 20050126, end: 20050126
  4. COLTRAMYL [Concomitant]

REACTIONS (7)
  - ANXIETY [None]
  - BLOOD CREATININE DECREASED [None]
  - BLOOD POTASSIUM DECREASED [None]
  - DYSPNOEA EXERTIONAL [None]
  - LARYNGOSPASM [None]
  - LOSS OF CONSCIOUSNESS [None]
  - MALAISE [None]
